FAERS Safety Report 10234756 (Version 1)
Quarter: 2014Q2

REPORT INFORMATION
  Report Type: Spontaneous
  Country: US (occurrence: None)
  Receive Date: 20140611
  Receipt Date: 20140611
  Transmission Date: 20141212
  Serious: No
  Sender: FDA-Public Use
  Company Number: None

PATIENT
  Age: 54 Year
  Sex: Female

DRUGS (1)
  1. COPAXONE 40 MG [Suspect]
     Dosage: THREE TIMES, WEEKLY, SC.
     Route: 058

REACTIONS (4)
  - Chest pain [None]
  - Dyspnoea [None]
  - Anxiety [None]
  - Flushing [None]
